FAERS Safety Report 8837385 (Version 2)
Quarter: 2012Q4

REPORT INFORMATION
  Report Type: 
  Country: IQ (occurrence: IQ)
  Receive Date: 20121012
  Receipt Date: 20121031
  Transmission Date: 20130627
  Serious: No
  Sender: FDA-Public Use
  Company Number: PHHY2012IQ090395

PATIENT
  Sex: Male

DRUGS (1)
  1. TASIGNA [Suspect]
     Indication: CHRONIC MYELOID LEUKAEMIA
     Dosage: 3 DF, two tablets in the morning and one tab at night
     Route: 048
     Dates: start: 201209

REACTIONS (4)
  - Rash [Recovering/Resolving]
  - Nausea [Unknown]
  - Abdominal distension [Unknown]
  - Labelled drug-food interaction medication error [Unknown]
